FAERS Safety Report 7689888-9 (Version None)
Quarter: 2011Q3

REPORT INFORMATION
  Report Type: 
  Country: None (occurrence: None)
  Receive Date: 20110818
  Receipt Date: 20110808
  Transmission Date: 20111222
  Serious: No
  Sender: FDA-Public Use
  Company Number: US-BIOGENIDEC-2010BI034208

PATIENT
  Sex: Female

DRUGS (2)
  1. TYSABRI [Suspect]
     Indication: MULTIPLE SCLEROSIS
     Route: 042
     Dates: start: 20100628
  2. AVONEX [Concomitant]
     Indication: MULTIPLE SCLEROSIS
     Route: 030

REACTIONS (9)
  - PERIPHERAL COLDNESS [None]
  - FATIGUE [None]
  - MIGRAINE [None]
  - CONTUSION [None]
  - HYPOAESTHESIA [None]
  - COAGULOPATHY [None]
  - FALL [None]
  - DRUG EFFECT DECREASED [None]
  - HEADACHE [None]
